FAERS Safety Report 12945583 (Version 12)
Quarter: 2018Q1

REPORT INFORMATION
  Report Type: Report from Study
  Country: DE (occurrence: DE)
  Receive Date: 20161116
  Receipt Date: 20180312
  Transmission Date: 20180508
  Serious: Yes (Hospitalization, Other)
  Sender: FDA-Public Use
  Company Number: DE-INCYTE CORPORATION-2016IN007196

PATIENT

DRUGS (6)
  1. INCB018424 [Suspect]
     Active Substance: RUXOLITINIB
     Indication: PRIMARY MYELOFIBROSIS
     Dosage: UNK
     Route: 048
     Dates: start: 20160421
  2. INCB018424 [Suspect]
     Active Substance: RUXOLITINIB
     Indication: MYELOPROLIFERATIVE NEOPLASM
     Dosage: 2 DF, QD (5 MG 2 DF PER DAY)
     Route: 048
     Dates: start: 20160423, end: 20160516
  3. INCB018424 [Suspect]
     Active Substance: RUXOLITINIB
     Dosage: 10 MG, QD
     Route: 048
     Dates: start: 20170224
  4. INCB018424 [Suspect]
     Active Substance: RUXOLITINIB
     Dosage: 5 MG, PER DAY, IN ADDITION 5 MG 2X PER WEEK
     Route: 048
     Dates: start: 20161231, end: 20170119
  5. INCB018424 [Suspect]
     Active Substance: RUXOLITINIB
     Dosage: 3 DF, QD (5 MG)
     Route: 048
     Dates: start: 20170120, end: 20170223
  6. INCB018424 [Suspect]
     Active Substance: RUXOLITINIB
     Dosage: 10 MG, QD (IN ADDITION 5 MG 2X PER WEEK)
     Route: 048
     Dates: start: 20160517, end: 20160927

REACTIONS (13)
  - Asthenia [Unknown]
  - Second primary malignancy [Not Recovered/Not Resolved]
  - Blast cell crisis [Unknown]
  - General physical health deterioration [Unknown]
  - Fatigue [Unknown]
  - Haemoglobin decreased [Unknown]
  - Chronic myelomonocytic leukaemia [Not Recovered/Not Resolved]
  - Decreased appetite [Unknown]
  - Hypotonia [Unknown]
  - Neutrophil count decreased [Unknown]
  - White blood cell count decreased [Unknown]
  - Cytopenia [Recovering/Resolving]
  - Thrombocytopenia [Recovered/Resolved]

NARRATIVE: CASE EVENT DATE: 20160714
